FAERS Safety Report 4681968-5 (Version None)
Quarter: 2005Q2

REPORT INFORMATION
  Report Type: 
  Country: None (occurrence: None)
  Receive Date: 20050606
  Receipt Date: 20040614
  Transmission Date: 20051028
  Serious: Yes (Disabling, Other)
  Sender: FDA-Public Use
  Company Number: PHBS2004BE07990

PATIENT
  Age: 71 Year
  Sex: Male

DRUGS (11)
  1. BONE MARROW TRANSPLANT [Concomitant]
     Dosage: AUTOLOGOUS STEM CELL TRANSPLANT
     Route: 065
     Dates: start: 20011101
  2. MELPHALAN [Concomitant]
     Dosage: 14 MG/D 4 DAYS EVERY 6 WEEKS
     Route: 065
     Dates: start: 20031217
  3. AREDIA [Suspect]
     Indication: MULTIPLE MYELOMA
     Dosage: 90 MG 4 TIMES BETWEEN NOV 2001 AND JUL 2004
     Route: 042
     Dates: start: 20011101, end: 20040701
  4. PAMIDRONIC ACID [Suspect]
     Dosage: UNK, ONCE/SINGLE
     Route: 065
     Dates: start: 20040611, end: 20040611
  5. VINCRISTINE + ADRIAMYCIN + DEXAMETHASONE [Concomitant]
     Dosage: 4 CURES
     Route: 065
     Dates: start: 20010601
  6. DEXAMETHASONE [Concomitant]
     Route: 065
     Dates: start: 20030702, end: 20031001
  7. ALKERAN [Concomitant]
     Indication: DISEASE PROGRESSION
     Dosage: 14 MG/D
     Route: 065
     Dates: start: 20030702, end: 20031001
  8. MEDROL [Concomitant]
     Dosage: 96 MG 4 DAYS EVERY 6 WEEKS
     Route: 065
     Dates: start: 20031217
  9. MEDROL [Concomitant]
     Dosage: 96 MG/D
     Route: 065
     Dates: start: 20030702, end: 20031001
  10. ZOMETA [Suspect]
     Indication: MULTIPLE MYELOMA
     Dosage: 4 MG, QMO
     Route: 042
     Dates: start: 20030806, end: 20040512
  11. THALIDOMIDE [Concomitant]
     Route: 065
     Dates: start: 20030702, end: 20031001

REACTIONS (8)
  - ASEPTIC NECROSIS BONE [None]
  - GENERAL PHYSICAL HEALTH DETERIORATION [None]
  - NERVOUS SYSTEM DISORDER [None]
  - OSTEONECROSIS [None]
  - PRIMARY SEQUESTRUM [None]
  - SUPERINFECTION [None]
  - TOOTH DISORDER [None]
  - TOOTH EXTRACTION [None]
